FAERS Safety Report 7422255-1 (Version None)
Quarter: 2011Q2

REPORT INFORMATION
  Report Type: 
  Country: None (occurrence: None)
  Receive Date: 20110419
  Receipt Date: 20110404
  Transmission Date: 20111010
  Serious: Yes (Other)
  Sender: FDA-Public Use
  Company Number: IR-RANBAXY-2011RR-43508

PATIENT
  Age: 60 Year
  Sex: Male

DRUGS (5)
  1. FLUMAZENIL [Suspect]
     Indication: TOXICITY TO VARIOUS AGENTS
     Dosage: 0.2 MG, UNK
  2. GLIBENCLAMIDE [Concomitant]
  3. NITROCANTINE [Concomitant]
  4. LORAZEPAM [Suspect]
  5. ATORVASTATIN [Concomitant]

REACTIONS (3)
  - VENTRICULAR TACHYCARDIA [None]
  - OVERDOSE [None]
  - COMA [None]
